FAERS Safety Report 9097817 (Version 1)
Quarter: 2013Q1

REPORT INFORMATION
  Report Type: Spontaneous
  Country: BR (occurrence: BR)
  Receive Date: 20130212
  Receipt Date: 20130212
  Transmission Date: 20140127
  Serious: Yes (Other)
  Sender: FDA-Public Use
  Company Number: PHHY2013BR012569

PATIENT
  Sex: Female
  Weight: 5.75 kg

DRUGS (6)
  1. TEGRETOL [Suspect]
     Indication: CONVULSION
     Dosage: 3 ML, Q12H
     Dates: start: 20120624
  2. TOPIRAMATE [Suspect]
     Indication: CONVULSION
     Dosage: 3 ML, Q12H
     Dates: start: 20120624
  3. GARDENAL ^AVENTIS^ [Suspect]
     Indication: CONVULSION
     Dosage: 30 DRP, QD
     Dates: start: 20120624
  4. AD-TIL [Concomitant]
     Dosage: 2 DRP, QD
  5. NORIPURUM [Concomitant]
     Dosage: 5 DRP, QD
  6. KALYAMON B12 [Concomitant]
     Dosage: 2.5 ML, QD

REACTIONS (1)
  - Feeding disorder neonatal [Recovering/Resolving]
